FAERS Safety Report 9629541 (Version 1)
Quarter: 2013Q4

REPORT INFORMATION
  Report Type: Spontaneous
  Country: NL (occurrence: NL)
  Receive Date: 20131017
  Receipt Date: 20131017
  Transmission Date: 20140711
  Serious: Yes (Other)
  Sender: FDA-Public Use
  Company Number: NL-NAPPMUNDI-GBR-2013-0015993

PATIENT
  Age: 92 Year
  Sex: Female

DRUGS (2)
  1. BUTRANS [Suspect]
     Indication: ARTHRALGIA
     Dosage: 20 MCG, Q1H
     Route: 062
  2. BUTRANS [Suspect]
     Dosage: 10 MCG, Q1H
     Route: 062

REACTIONS (2)
  - Delirium [Unknown]
  - Miosis [Unknown]
